FAERS Safety Report 14497031 (Version 1)
Quarter: 2018Q1

REPORT INFORMATION
  Report Type: Spontaneous
  Country: US (occurrence: US)
  Receive Date: 20180207
  Receipt Date: 20180207
  Transmission Date: 20180509
  Serious: Yes (Other)
  Sender: FDA-Public Use
  Company Number: None

PATIENT
  Age: 56 Year
  Sex: Male
  Weight: 104.78 kg

DRUGS (14)
  1. HYDROCODONE [Suspect]
     Active Substance: HYDROCODONE
     Indication: PAIN
     Route: 048
  2. INVOKANA [Suspect]
     Active Substance: CANAGLIFLOZIN
     Indication: BLOOD GLUCOSE ABNORMAL
     Route: 048
     Dates: start: 20170108, end: 20170907
  3. LISINOPRIL. [Concomitant]
     Active Substance: LISINOPRIL
  4. HYDROCODONE [Concomitant]
     Active Substance: HYDROCODONE
  5. JANUMET [Concomitant]
     Active Substance: METFORMIN HYDROCHLORIDE\SITAGLIPTIN PHOSPHATE
  6. VOLTAREN JELL [Concomitant]
  7. POLYETHYLENE GLYCOL [Concomitant]
     Active Substance: POLYETHYLENE GLYCOLS
  8. FARXIGA [Concomitant]
     Active Substance: DAPAGLIFLOZIN PROPANEDIOL
  9. PROCTOZONE [Concomitant]
     Active Substance: HYDROCORTISONE
  10. NAPROXEN. [Concomitant]
     Active Substance: NAPROXEN
  11. SPIRONOLACTONE. [Concomitant]
     Active Substance: SPIRONOLACTONE
  12. CRESTOR [Suspect]
     Active Substance: ROSUVASTATIN CALCIUM
  13. NEXIUM [Concomitant]
     Active Substance: ESOMEPRAZOLE MAGNESIUM
  14. METHOCARBAMOL. [Concomitant]
     Active Substance: METHOCARBAMOL

REACTIONS (8)
  - Product substitution issue [None]
  - Dyspnoea [None]
  - Dizziness [None]
  - Feeling abnormal [None]
  - Hyperhidrosis [None]
  - Hypoaesthesia [None]
  - Pain in extremity [None]
  - Peripheral coldness [None]

NARRATIVE: CASE EVENT DATE: 20170701
